FAERS Safety Report 7731069-4 (Version None)
Quarter: 2011Q3

REPORT INFORMATION
  Report Type: 
  Country: None (occurrence: None)
  Receive Date: 20110906
  Receipt Date: 20110906
  Transmission Date: 20111222
  Serious: Yes (Death)
  Sender: FDA-Public Use
  Company Number: None

PATIENT
  Sex: Female
  Weight: 61.2 kg

DRUGS (1)
  1. PRADAXA [Suspect]
     Dosage: 150MG
     Route: 048

REACTIONS (5)
  - SUBDURAL HAEMATOMA [None]
  - TREATMENT FAILURE [None]
  - FALL [None]
  - WRIST FRACTURE [None]
  - FEMORAL NECK FRACTURE [None]
